FAERS Safety Report 24932060 (Version 1)
Quarter: 2025Q1

REPORT INFORMATION
  Report Type: Report from Study
  Country: US (occurrence: US)
  Receive Date: 20250205
  Receipt Date: 20250205
  Transmission Date: 20250408
  Serious: No
  Sender: EXELIXIS
  Company Number: US-EXELIXIS-CABO-24079602

PATIENT
  Sex: Male

DRUGS (1)
  1. CABOMETYX [Suspect]
     Active Substance: CABOZANTINIB S-MALATE
     Indication: Renal cancer
     Dosage: 20 MG, QD FOR 14 DAYS ON THEN 14 DAYS OFF ON
     Route: 048

REACTIONS (7)
  - Glossodynia [Unknown]
  - Fatigue [Unknown]
  - Diarrhoea [Unknown]
  - Anxiety [Unknown]
  - Myalgia [Unknown]
  - Muscular weakness [Unknown]
  - Inappropriate schedule of product administration [Unknown]
